FAERS Safety Report 16348849 (Version 2)
Quarter: 2019Q2

REPORT INFORMATION
  Report Type: Spontaneous
  Country: MX (occurrence: MX)
  Receive Date: 20190523
  Receipt Date: 20190621
  Transmission Date: 20190711
  Serious: Yes (Other)
  Sender: FDA-Public Use
  Company Number: MX-ASTRAZENECA-2019SE74606

PATIENT
  Age: 26180 Day
  Sex: Male
  Weight: 90 kg

DRUGS (3)
  1. XIGDUO XR [Suspect]
     Active Substance: DAPAGLIFLOZIN PROPANEDIOL\METFORMIN HYDROCHLORIDE
     Indication: DIABETES MELLITUS
     Dosage: 10/1000 1 TAB C-24 HRS
     Route: 048
     Dates: start: 20180515
  2. COMBODART [Concomitant]
     Active Substance: DUTASTERIDE\TAMSULOSIN
     Indication: PROSTATIC DISORDER
     Dosage: 0.5MG UNKNOWN
     Route: 048
     Dates: start: 20190515
  3. INSULIN [Concomitant]
     Active Substance: INSULIN NOS
     Indication: DIABETES MELLITUS
     Dosage: 25.0IU UNKNOWN
     Route: 058
     Dates: start: 20180515

REACTIONS (5)
  - Drug interaction [Unknown]
  - Dysuria [Unknown]
  - Prostatic disorder [Not Recovered/Not Resolved]
  - Adverse event [Unknown]
  - Prostatic pain [Unknown]

NARRATIVE: CASE EVENT DATE: 20180915
